FAERS Safety Report 4498205-7 (Version None)
Quarter: 2004Q3

REPORT INFORMATION
  Report Type: 
  Country: None (occurrence: None)
  Receive Date: 20040927
  Receipt Date: 20040607
  Transmission Date: 20050211
  Serious: No
  Sender: FDA-Public Use
  Company Number: USA040669439

PATIENT
  Age: 6 Year
  Sex: Male
  Weight: 23 kg

DRUGS (2)
  1. STRATTERA [Suspect]
     Indication: ATTENTION DEFICIT/HYPERACTIVITY DISORDER
     Dosage: 40 MG / 1 DAY
     Dates: start: 20040601
  2. RITALIN [Concomitant]

REACTIONS (5)
  - ABNORMAL BEHAVIOUR [None]
  - ASTHENOPIA [None]
  - FATIGUE [None]
  - HYPERACUSIS [None]
  - PRESCRIBED OVERDOSE [None]
